FAERS Safety Report 24409513 (Version 1)
Quarter: 2024Q4

REPORT INFORMATION
  Report Type: Report from Study
  Country: FR (occurrence: FR)
  Receive Date: 20241008
  Receipt Date: 20241008
  Transmission Date: 20250115
  Serious: Yes (Death, Other)
  Sender: JOHNSON AND JOHNSON
  Company Number: FR-JNJFOC-20241008534

PATIENT

DRUGS (2)
  1. REMICADE [Suspect]
     Active Substance: INFLIXIMAB
     Indication: Neurosarcoidosis
     Route: 041
  2. METHOTREXATE [Suspect]
     Active Substance: METHOTREXATE
     Indication: Neurosarcoidosis
     Route: 065

REACTIONS (6)
  - Sepsis [Fatal]
  - Hepatic cytolysis [Unknown]
  - Infection [Unknown]
  - Myalgia [Unknown]
  - Neoplasm [Unknown]
  - Off label use [Unknown]
